FAERS Safety Report 17940312 (Version 1)
Quarter: 2020Q2

REPORT INFORMATION
  Report Type: Spontaneous
  Country: GB (occurrence: GB)
  Receive Date: 20200624
  Receipt Date: 20200624
  Transmission Date: 20200714
  Serious: No
  Sender: FDA-Public Use
  Company Number: BELL 2020-0028

PATIENT
  Sex: Male

DRUGS (1)
  1. PARACETAMOL MOLECULE FROM UK MARKET [Suspect]
     Active Substance: ACETAMINOPHEN
     Route: 048

REACTIONS (5)
  - Visual impairment [Unknown]
  - Vomiting [Unknown]
  - Fatigue [None]
  - Hyperhidrosis [None]
  - Asthenia [Unknown]
